FAERS Safety Report 8349927 (Version 3)
Quarter: 2012Q4

REPORT INFORMATION
  Report Type: 
  Country: BR (occurrence: BR)
  Receive Date: 20120123
  Receipt Date: 20121019
  Transmission Date: 20130627
  Serious: Yes (Hospitalization)
  Sender: FDA-Public Use
  Company Number: BR-ASTRAZENECA-2012SE03467

PATIENT
  Age: 72 Year
  Sex: Female
  Weight: 66 kg

DRUGS (9)
  1. ATACAND HCT [Suspect]
     Indication: HYPERTENSION
     Dosage: 8/12.5 MG
     Route: 048
     Dates: start: 2008
  2. NEXIUM [Suspect]
     Indication: GASTRITIS
     Route: 048
     Dates: start: 2010
  3. SELOZOK [Suspect]
     Indication: VASCULAR STENOSIS
     Route: 048
     Dates: start: 2008
  4. CRESTOR [Suspect]
     Indication: BLOOD CHOLESTEROL INCREASED
     Route: 048
     Dates: start: 2008
  5. BRILINTA [Suspect]
     Indication: VASCULAR STENOSIS
     Route: 048
     Dates: start: 20120112
  6. PARACETAMOL [Concomitant]
     Indication: OSTEITIS DEFORMANS
  7. OSTEOFORM [Concomitant]
     Indication: OSTEITIS DEFORMANS
  8. ASA PAEDIATRIC [Concomitant]
  9. CEBRALAT [Concomitant]

REACTIONS (7)
  - Acute coronary syndrome [Unknown]
  - Implant site fibrosis [Unknown]
  - Vascular stenosis [Recovered/Resolved]
  - Device malfunction [Unknown]
  - Coronary artery restenosis [Unknown]
  - Off label use [Not Recovered/Not Resolved]
  - Drug ineffective for unapproved indication [Unknown]
